FAERS Safety Report 9165350 (Version 1)
Quarter: 2013Q1

REPORT INFORMATION
  Report Type: Spontaneous
  Country: MA (occurrence: None)
  Receive Date: 20130227
  Receipt Date: 20130227
  Transmission Date: 20140127
  Serious: Yes (Hospitalization)
  Sender: FDA-Public Use
  Company Number: FK201300501

PATIENT
  Age: 19 Year
  Sex: Female

DRUGS (2)
  1. VALPROATE [Suspect]
     Indication: EPILEPSY
  2. PHENOBARTIBAL (PHENOBARBITAL) [Concomitant]

REACTIONS (5)
  - Stevens-Johnson syndrome [None]
  - Toxic epidermal necrolysis [None]
  - Anaemia [None]
  - Lung consolidation [None]
  - Cytomegalovirus infection [None]
